FAERS Safety Report 23038203 (Version 1)
Quarter: 2023Q4

REPORT INFORMATION
  Report Type: Spontaneous
  Country: US (occurrence: US)
  Receive Date: 20231006
  Receipt Date: 20231006
  Transmission Date: 20240110
  Serious: No
  Sender: FDA-Public Use
  Company Number: US-INCYTE CORPORATION-2023IN010099

PATIENT

DRUGS (1)
  1. JAKAFI [Suspect]
     Active Substance: RUXOLITINIB
     Indication: Myelodysplastic syndrome
     Dosage: 25 MILLIGRAM, BID
     Route: 048
     Dates: start: 202305

REACTIONS (3)
  - Headache [Unknown]
  - Dizziness [Unknown]
  - Off label use [Unknown]
